FAERS Safety Report 16819774 (Version 2)
Quarter: 2019Q3

REPORT INFORMATION
  Report Type: Spontaneous
  Country: DE (occurrence: DE)
  Receive Date: 20190917
  Receipt Date: 20190920
  Transmission Date: 20191005
  Serious: Yes (Death, Hospitalization, Other)
  Sender: FDA-Public Use
  Company Number: DE-CELLTRION INC.-2018DE024825

PATIENT

DRUGS (1)
  1. RITUXIMAB (UNKNOWN) [Suspect]
     Active Substance: RITUXIMAB
     Indication: RHEUMATOID ARTHRITIS
     Dosage: 1000 MG, EVERY 6 MONTHS
     Route: 042

REACTIONS (9)
  - Septic shock [Fatal]
  - Vulvovaginal ulceration [Fatal]
  - Sepsis [Fatal]
  - B-lymphocyte count decreased [Fatal]
  - Secondary immunodeficiency [Fatal]
  - Immunodeficiency [Fatal]
  - Vulvovaginitis [Fatal]
  - Superinfection bacterial [Fatal]
  - Product use issue [Unknown]
